FAERS Safety Report 8987330 (Version 1)
Quarter: 2012Q4

REPORT INFORMATION
  Report Type: 
  Country: JP (occurrence: JP)
  Receive Date: 20121226
  Receipt Date: 20121226
  Transmission Date: 20130627
  Serious: Yes (Other)
  Sender: FDA-Public Use
  Company Number: JP-ALLERGAN-1216875US

PATIENT
  Age: 74 Year
  Sex: Male

DRUGS (7)
  1. BOTOX [Suspect]
     Indication: MUSCLE SPASMS
     Dosage: UNK UNK, single
     Route: 030
     Dates: start: 20120727, end: 20120727
  2. BOTOX [Suspect]
     Dosage: 240 UNITS, single
     Route: 030
     Dates: start: 20121129, end: 20121129
  3. WARFARIN [Concomitant]
     Indication: PROPHYLAXIS
     Dosage: 4 mg, qd
     Route: 048
     Dates: start: 20120710
  4. HARNAL [Concomitant]
     Indication: POLLAKIURIA
     Dosage: 0.2 mg, qd
     Route: 048
     Dates: start: 20120710
  5. URITOS [Concomitant]
     Indication: POLLAKIURIA
     Dosage: 0.1 mg, bid
     Route: 048
     Dates: start: 20120830
  6. MYSLEE [Concomitant]
     Indication: INSOMNIA
     Dosage: 10 mg, qd
     Route: 048
     Dates: start: 20120710
  7. MAGMITT [Concomitant]
     Indication: CONSTIPATION
     Dosage: 330 mg, tid
     Route: 048
     Dates: start: 20120719

REACTIONS (6)
  - Convulsion [Recovered/Resolved]
  - Loss of consciousness [Recovered/Resolved]
  - Eye disorder [Unknown]
  - Unresponsive to stimuli [Unknown]
  - Urinary incontinence [Unknown]
  - Faecal incontinence [Unknown]
